FAERS Safety Report 26217601 (Version 1)
Quarter: 2025Q4

REPORT INFORMATION
  Report Type: Spontaneous
  Country: US (occurrence: US)
  Receive Date: 20251231
  Receipt Date: 20251231
  Transmission Date: 20260118
  Serious: Yes (Other)
  Sender: INCYTE
  Company Number: US-INCYTE CORPORATION-2025IN014416

PATIENT
  Age: 30 Year

DRUGS (1)
  1. JAKAFI [Suspect]
     Active Substance: RUXOLITINIB
     Indication: Acute myeloid leukaemia
     Dosage: 10 MILLIGRAM, BID
     Route: 061

REACTIONS (11)
  - Platelet count decreased [Unknown]
  - Haemoptysis [Unknown]
  - Hepatic enzyme increased [Unknown]
  - Muscle spasms [Unknown]
  - Myalgia [Unknown]
  - Pruritus [Unknown]
  - Blood bilirubin increased [Unknown]
  - Fatigue [Unknown]
  - Dry eye [Unknown]
  - Product availability issue [Unknown]
  - Off label use [Unknown]
